FAERS Safety Report 22540454 (Version 2)
Quarter: 2023Q2

REPORT INFORMATION
  Report Type: Report from Study
  Country: US (occurrence: US)
  Receive Date: 20230609
  Receipt Date: 20230609
  Transmission Date: 20230722
  Serious: Yes (Hospitalization)
  Sender: FDA-Public Use
  Company Number: US-JNJFOC-20230619908

PATIENT
  Age: 3 Decade
  Sex: Male
  Weight: 88.53 kg

DRUGS (2)
  1. INFLIXIMAB [Suspect]
     Active Substance: INFLIXIMAB
     Indication: Inflammatory bowel disease
     Route: 041
     Dates: start: 20070226, end: 20070615
  2. HUMIRA [Concomitant]
     Active Substance: ADALIMUMAB
     Route: 065
     Dates: start: 20090105, end: 201301

REACTIONS (1)
  - Visceral pain [Recovered/Resolved]

NARRATIVE: CASE EVENT DATE: 20130206
